FAERS Safety Report 7789829-X (Version None)
Quarter: 2011Q3

REPORT INFORMATION
  Report Type: 
  Country: None (occurrence: None)
  Receive Date: 20110930
  Receipt Date: 20110926
  Transmission Date: 20111222
  Serious: Yes (Death, Hospitalization)
  Sender: FDA-Public Use
  Company Number: ES-BRISTOL-MYERS SQUIBB COMPANY-16095739

PATIENT
  Age: 65 Year
  Sex: Male

DRUGS (5)
  1. CYCLOPHOSPHAMIDE [Suspect]
     Indication: CRYOGLOBULINAEMIA
  2. AZATHIOPRINE [Suspect]
     Indication: CRYOGLOBULINAEMIA
  3. MYCOPHENOLATE MOFETIL [Suspect]
     Indication: CRYOGLOBULINAEMIA
  4. CORTICOSTEROID [Suspect]
     Indication: CRYOGLOBULINAEMIA
  5. METHOTREXATE [Suspect]
     Indication: CRYOGLOBULINAEMIA

REACTIONS (4)
  - SKIN ULCER [None]
  - STAPHYLOCOCCAL SEPSIS [None]
  - ISCHAEMIC STROKE [None]
  - RENAL FAILURE [None]
